FAERS Safety Report 12998322 (Version 1)
Quarter: 2016Q4

REPORT INFORMATION
  Report Type: Spontaneous
  Country: US (occurrence: US)
  Receive Date: 20161205
  Receipt Date: 20161205
  Transmission Date: 20170207
  Serious: Yes (Other)
  Sender: FDA-Public Use
  Company Number: US-PFIZER INC-2016553912

PATIENT
  Age: 68 Year
  Sex: Male
  Weight: 97.52 kg

DRUGS (1)
  1. NEURONTIN [Suspect]
     Active Substance: GABAPENTIN
     Indication: NEUROPATHY PERIPHERAL
     Dosage: UNK

REACTIONS (7)
  - Burning sensation [Unknown]
  - Dysstasia [Unknown]
  - Suicidal ideation [Unknown]
  - Presyncope [Unknown]
  - Pain [Recovering/Resolving]
  - Condition aggravated [Unknown]
  - Crying [Unknown]
